FAERS Safety Report 12310407 (Version 1)
Quarter: 2016Q2

REPORT INFORMATION
  Report Type: Spontaneous
  Country: US (occurrence: None)
  Receive Date: 20160426
  Receipt Date: 20160426
  Transmission Date: 20160815
  Serious: No
  Sender: FDA-Public Use
  Company Number: None

PATIENT
  Age: 45 Year
  Sex: Female

DRUGS (1)
  1. LUPANETA PACK [Suspect]
     Active Substance: ISOPROPYL ALCOHOL\LEUPROLIDE ACETATE\NORETHINDRONE ACETATE
     Dosage: 3.75-5.1 Q 28/1D I.M./ORAL

REACTIONS (2)
  - Lower respiratory tract congestion [None]
  - Cough [None]

NARRATIVE: CASE EVENT DATE: 20160418
